FAERS Safety Report 19462885 (Version 2)
Quarter: 2021Q3

REPORT INFORMATION
  Report Type: Report from Study
  Country: US (occurrence: US)
  Receive Date: 20210625
  Receipt Date: 20210823
  Transmission Date: 20211014
  Serious: No
  Sender: FDA-Public Use
  Company Number: NVSC2021US138814

PATIENT
  Sex: Female

DRUGS (1)
  1. KISQALI [Suspect]
     Active Substance: RIBOCICLIB
     Indication: BREAST CANCER
     Dosage: 200 MG, QD
     Route: 048

REACTIONS (6)
  - Oral pain [Recovering/Resolving]
  - Burning sensation [Recovering/Resolving]
  - White blood cell count decreased [Not Recovered/Not Resolved]
  - Product dose omission issue [Recovered/Resolved]
  - Aphthous ulcer [Recovering/Resolving]
  - Arthralgia [Not Recovered/Not Resolved]
